FAERS Safety Report 8771526 (Version 2)
Quarter: 2012Q4

REPORT INFORMATION
  Report Type: 
  Country: JP (occurrence: JP)
  Receive Date: 20120905
  Receipt Date: 20120917
  Transmission Date: 20130627
  Serious: Yes (Hospitalization, Other)
  Sender: FDA-Public Use
  Company Number: JP-PFIZER INC-2012212663

PATIENT
  Age: 58 Year
  Sex: Male
  Weight: 62.4 kg

DRUGS (8)
  1. CARBOPLATIN [Suspect]
     Indication: NON-SMALL CELL LUNG CANCER
     Dosage: 590 mg, UNK
     Dates: start: 200112
  2. CARBOPLATIN [Suspect]
     Dosage: 590 mg, UNK
     Dates: start: 200201
  3. CARBOPLATIN [Suspect]
     Dosage: 575 mg, UNK
     Dates: start: 200208
  4. CARBOPLATIN [Suspect]
     Dosage: 575 mg, UNK
     Dates: start: 200209
  5. CARBOPLATIN [Suspect]
     Dosage: 400 mg, UNK
     Route: 041
     Dates: start: 200303
  6. CARBOPLATIN [Suspect]
     Dosage: 400 mg, UNK
     Route: 041
     Dates: start: 200304
  7. CARBOPLATIN [Suspect]
     Dosage: 600 mg, UNK
     Route: 041
     Dates: start: 20031114
  8. GEMCITABINE HYDROCHLORIDE [Suspect]
     Indication: NON-SMALL CELL LUNG CANCER
     Dosage: 1600 mg, UNK
     Route: 041
     Dates: start: 20031114

REACTIONS (5)
  - Acute myocardial infarction [Unknown]
  - Coronary artery disease [None]
  - Bundle branch block right [None]
  - Bone marrow failure [None]
  - Coronary artery restenosis [None]
